FAERS Safety Report 21768863 (Version 1)
Quarter: 2022Q4

REPORT INFORMATION
  Report Type: Other
  Country: US (occurrence: None)
  Receive Date: 20221222
  Receipt Date: 20221222
  Transmission Date: 20230113
  Serious: Yes (Hospitalization)
  Sender: FDA-Public Use
  Company Number: US-ROCHE-3245525

PATIENT
  Age: 36 Year
  Sex: Female
  Weight: 64.014 kg

DRUGS (3)
  1. OCREVUS [Suspect]
     Active Substance: OCRELIZUMAB
     Indication: Relapsing multiple sclerosis
     Dosage: ONGOING: YES, REPORTS HAVING THE INFUSION EVERY 5-6 MONTHS
     Route: 042
     Dates: start: 201904
  2. BIOTIN [Concomitant]
     Active Substance: BIOTIN
  3. MODERNA COVID-19 VACCINE [Concomitant]
     Active Substance: ELASOMERAN

REACTIONS (18)
  - Urinary tract infection [Recovered/Resolved]
  - Colitis [Unknown]
  - Sepsis [Unknown]
  - Heart rate increased [Recovered/Resolved]
  - Blood pressure measurement [Recovered/Resolved]
  - Pyrexia [Recovered/Resolved]
  - Kidney infection [Recovered/Resolved]
  - Alopecia [Not Recovered/Not Resolved]
  - Menstruation irregular [Not Recovered/Not Resolved]
  - Intermenstrual bleeding [Not Recovered/Not Resolved]
  - Pain [Not Recovered/Not Resolved]
  - Accident [Unknown]
  - Intervertebral disc protrusion [Not Recovered/Not Resolved]
  - Nerve injury [Not Recovered/Not Resolved]
  - Concussion [Not Recovered/Not Resolved]
  - Post-traumatic neck syndrome [Not Recovered/Not Resolved]
  - Tinnitus [Not Recovered/Not Resolved]
  - Musculoskeletal disorder [Unknown]

NARRATIVE: CASE EVENT DATE: 20190701
